FAERS Safety Report 25758467 (Version 1)
Quarter: 2025Q3

REPORT INFORMATION
  Report Type: Spontaneous
  Country: EU (occurrence: EU)
  Receive Date: 20250904
  Receipt Date: 20250904
  Transmission Date: 20251020
  Serious: Yes (Hospitalization)
  Sender: SANDOZ
  Company Number: EU-CHEPLA-2025009974

PATIENT
  Age: 40 Year
  Sex: Female

DRUGS (4)
  1. METHOTREXATE [Suspect]
     Active Substance: METHOTREXATE
     Indication: Systemic lupus erythematosus
     Route: 065
  2. PREDNISONE [Suspect]
     Active Substance: PREDNISONE
     Dosage: 1 MG/KG, QD
     Route: 065
  3. PREDNISONE [Suspect]
     Active Substance: PREDNISONE
     Indication: Systemic lupus erythematosus
     Dosage: 10 MG, QD
     Route: 065
  4. RITUXIMAB [Suspect]
     Active Substance: RITUXIMAB
     Indication: Systemic lupus erythematosus
     Route: 065

REACTIONS (1)
  - Histoplasmosis disseminated [Unknown]
